FAERS Safety Report 8575450-2 (Version None)
Quarter: 2012Q3

REPORT INFORMATION
  Report Type: 
  Country: None (occurrence: None)
  Receive Date: 20120807
  Receipt Date: 20120801
  Transmission Date: 20120928
  Serious: Yes (Hospitalization)
  Sender: FDA-Public Use
  Company Number: PHHY2012AU059795

PATIENT
  Sex: Female

DRUGS (8)
  1. ATENOLOL [Concomitant]
     Indication: HYPERTENSION
     Dosage: 25 MG, BID
     Route: 048
     Dates: start: 20100101
  2. EXFORGE [Suspect]
     Dosage: UNK
  3. EXFORGE [Suspect]
     Dosage: 1 DF(320 MG VAL/5 MG AMLO)
  4. OSTELIN [Concomitant]
     Dosage: 1 DF, UNK
     Route: 048
  5. OXYCODONE HCL [Concomitant]
     Dosage: 10 MG, BID
     Route: 048
  6. EXFORGE [Suspect]
     Dosage: 1 DF(160 MG VAL/5 MG AMLO)
     Dates: start: 20120501
  7. MACU-VISION [Concomitant]
     Dosage: 1 DF, UNK
     Route: 048
  8. COLOXYL WITH SENNA [Concomitant]
     Dosage: 2 DF, DAILY
     Route: 048

REACTIONS (3)
  - DIZZINESS [None]
  - NO THERAPEUTIC RESPONSE [None]
  - BLOOD SODIUM DECREASED [None]
